FAERS Safety Report 4353110-1 (Version None)
Quarter: 2004Q2

REPORT INFORMATION
  Report Type: 
  Country: None (occurrence: None)
  Receive Date: 20040429
  Receipt Date: 20040112
  Transmission Date: 20050107
  Serious: No
  Sender: FDA-Public Use
  Company Number: 2004PK00259

PATIENT
  Age: 22 Year
  Sex: Female
  Weight: 84 kg

DRUGS (7)
  1. SEROQUEL [Suspect]
     Indication: PARANOIA
  2. SEROQUEL [Suspect]
     Indication: SCHIZOPHRENIA
  3. FLUANXOL [Concomitant]
  4. OLANZAPIN [Concomitant]
  5. MELPERON [Concomitant]
  6. ZIPRASIDON [Concomitant]
  7. CHLORPROTHIXEN [Concomitant]

REACTIONS (4)
  - ALANINE AMINOTRANSFERASE INCREASED [None]
  - ASPARTATE AMINOTRANSFERASE INCREASED [None]
  - GAMMA-GLUTAMYLTRANSFERASE INCREASED [None]
  - LEUKOPENIA [None]
